FAERS Safety Report 9751712 (Version 2)
Quarter: 2014Q1

REPORT INFORMATION
  Report Type: Spontaneous
  Country: US (occurrence: US)
  Receive Date: 20131213
  Receipt Date: 20140102
  Transmission Date: 20141002
  Serious: Yes (Death, Life-Threatening, Other)
  Sender: FDA-Public Use
  Company Number: US-009507513-1312USA004709

PATIENT
  Age: 85 Year
  Sex: Male

DRUGS (9)
  1. ZETIA [Suspect]
     Dosage: 10 MG, QD
     Route: 048
     Dates: end: 20131207
  2. ALLOPURINOL [Concomitant]
  3. CRESTOR [Concomitant]
  4. DIGOXIN [Concomitant]
  5. FUROSEMIDE [Concomitant]
  6. ISOSORBIDE [Concomitant]
  7. NITROGLYCERIN [Concomitant]
  8. TAMSULOSIN HYDROCHLORIDE [Concomitant]
  9. WARFARIN [Concomitant]

REACTIONS (2)
  - Myocardial infarction [Fatal]
  - Resuscitation [Unknown]
